FAERS Safety Report 7305357-X (Version None)
Quarter: 2011Q1

REPORT INFORMATION
  Report Type: 
  Country: None (occurrence: None)
  Receive Date: 20110222
  Receipt Date: 20110214
  Transmission Date: 20110831
  Serious: Yes (Other)
  Sender: FDA-Public Use
  Company Number: DE-ASTRAZENECA-2011SE08955

PATIENT
  Sex: Female

DRUGS (3)
  1. VENLAFAXINE [Concomitant]
     Route: 064
  2. SEROQUEL [Suspect]
     Route: 064
  3. LITHIUM [Concomitant]
     Route: 064

REACTIONS (1)
  - DYSPNOEA [None]
